FAERS Safety Report 14371715 (Version 1)
Quarter: 2018Q1

REPORT INFORMATION
  Report Type: Spontaneous
  Country: US (occurrence: US)
  Receive Date: 20180110
  Receipt Date: 20180110
  Transmission Date: 20180509
  Serious: Yes (Hospitalization)
  Sender: FDA-Public Use
  Company Number: US-WEST-WARD PHARMACEUTICALS CORP.-US-H14001-18-00089

PATIENT
  Age: 54 Year
  Sex: Male

DRUGS (2)
  1. INFUMORPH [Suspect]
     Active Substance: MORPHINE SULFATE
     Indication: PAIN
     Route: 037
  2. INFUMORPH [Suspect]
     Active Substance: MORPHINE SULFATE
     Route: 037

REACTIONS (5)
  - Medical device site erythema [Unknown]
  - Medical device site warmth [Unknown]
  - Cerebrospinal fluid leakage [Recovered/Resolved]
  - Seroma [Recovered/Resolved]
  - Medical device site infection [Recovered/Resolved]

NARRATIVE: CASE EVENT DATE: 20170530
